FAERS Safety Report 23681051 (Version 2)
Quarter: 2024Q2

REPORT INFORMATION
  Report Type: Spontaneous
  Country: JP (occurrence: JP)
  Receive Date: 20240328
  Receipt Date: 20240404
  Transmission Date: 20240716
  Serious: Yes (Hospitalization, Other)
  Sender: FDA-Public Use
  Company Number: JP-ALKEM LABORATORIES LIMITED-JP-ALKEM-2024-05358

PATIENT
  Age: 5 Decade
  Sex: Female

DRUGS (3)
  1. TIZANIDINE [Suspect]
     Active Substance: TIZANIDINE
     Indication: Neck pain
     Dosage: 3 MG/DAY
     Route: 065
  2. TIZANIDINE [Suspect]
     Active Substance: TIZANIDINE
     Dosage: 8 MG/DAY (INCREASED DOSE)
     Route: 065
  3. ETIZOLAM [Concomitant]
     Active Substance: ETIZOLAM
     Indication: Insomnia
     Dosage: 0.5 MG/DAY
     Route: 065

REACTIONS (20)
  - Decorticate posture [Recovered/Resolved]
  - Drug withdrawal syndrome [Recovered/Resolved]
  - Renal impairment [Unknown]
  - Delirium [Unknown]
  - Hallucination, auditory [Recovered/Resolved]
  - Hallucination, visual [Recovered/Resolved]
  - Hepatotoxicity [Unknown]
  - Tachypnoea [Recovered/Resolved]
  - Insomnia [Recovered/Resolved]
  - Confusional state [Recovered/Resolved]
  - Decreased appetite [Recovered/Resolved]
  - Nausea [Recovered/Resolved]
  - Abnormal behaviour [Unknown]
  - Toxicity to various agents [Unknown]
  - Tremor [Recovered/Resolved]
  - Hypertension [Recovered/Resolved]
  - Tachycardia [Recovered/Resolved]
  - Delusion [Recovered/Resolved]
  - Hypertonia [Unknown]
  - Intentional product use issue [Unknown]
